FAERS Safety Report 6182648-X (Version None)
Quarter: 2009Q2

REPORT INFORMATION
  Report Type: 
  Country: None (occurrence: None)
  Receive Date: 20090507
  Receipt Date: 20090430
  Transmission Date: 20091009
  Serious: Yes (Hospitalization, Disabling)
  Sender: FDA-Public Use
  Company Number: A0718395A

PATIENT
  Age: 54 Year
  Sex: Female
  Weight: 70.9 kg

DRUGS (9)
  1. AVANDIA [Suspect]
     Dosage: 8MG PER DAY
     Route: 048
     Dates: end: 20070601
  2. NEXIUM [Concomitant]
  3. GLIPIZIDE [Concomitant]
  4. GLUCOPHAGE [Concomitant]
  5. LIPITOR [Concomitant]
  6. ALTACE [Concomitant]
  7. ALBUTEROL [Concomitant]
  8. ZETIA [Concomitant]
     Dates: start: 20070601
  9. TRICOR [Concomitant]

REACTIONS (2)
  - CARDIAC FAILURE CONGESTIVE [None]
  - MYOCARDIAL INFARCTION [None]
